FAERS Safety Report 16932312 (Version 1)
Quarter: 2019Q4

REPORT INFORMATION
  Report Type: Spontaneous
  Country: FR (occurrence: FR)
  Receive Date: 20191017
  Receipt Date: 20191017
  Transmission Date: 20200122
  Serious: No
  Sender: FDA-Public Use
  Company Number: FR-BEH-2019108131

PATIENT
  Sex: Female

DRUGS (4)
  1. CONFIDEX [Suspect]
     Active Substance: COAGULATION FACTOR IX HUMAN\COAGULATION FACTOR VII HUMAN\COAGULATION FACTOR X HUMAN\PROTEIN C\PROTEIN S HUMAN\PROTHROMBIN
     Dosage: UNK INTERNATIONAL UNIT
     Route: 065
     Dates: start: 20191007, end: 20191007
  2. CONFIDEX [Suspect]
     Active Substance: COAGULATION FACTOR IX HUMAN\COAGULATION FACTOR VII HUMAN\COAGULATION FACTOR X HUMAN\PROTEIN C\PROTEIN S HUMAN\PROTHROMBIN
     Dosage: UNK INTERNATIONAL UNIT
     Route: 065
     Dates: start: 20191007, end: 20191007
  3. CONFIDEX [Suspect]
     Active Substance: COAGULATION FACTOR IX HUMAN\COAGULATION FACTOR VII HUMAN\COAGULATION FACTOR X HUMAN\PROTEIN C\PROTEIN S HUMAN\PROTHROMBIN
     Dosage: UNK INTERNATIONAL UNIT
     Route: 065
     Dates: start: 20191007, end: 20191007
  4. CONFIDEX [Suspect]
     Active Substance: COAGULATION FACTOR IX HUMAN\COAGULATION FACTOR VII HUMAN\COAGULATION FACTOR X HUMAN\PROTEIN C\PROTEIN S HUMAN\PROTHROMBIN
     Dosage: UNK INTERNATIONAL UNIT
     Route: 065
     Dates: start: 20191007, end: 20191007

REACTIONS (4)
  - Product sterility lacking [Unknown]
  - No adverse event [Unknown]
  - Product preparation issue [Unknown]
  - Device issue [Unknown]

NARRATIVE: CASE EVENT DATE: 20191007
